FAERS Safety Report 24614798 (Version 1)
Quarter: 2024Q4

REPORT INFORMATION
  Report Type: Spontaneous
  Country: BE (occurrence: BE)
  Receive Date: 20241113
  Receipt Date: 20241113
  Transmission Date: 20250114
  Serious: Yes (Hospitalization, Other)
  Sender: AUROBINDO
  Company Number: GB-UNIOBIRM-SA3009-0654-01

PATIENT
  Age: 11 Year
  Sex: Female
  Weight: 40 kg

DRUGS (9)
  1. IRINOTECAN [Suspect]
     Active Substance: IRINOTECAN
     Indication: Rhabdomyosarcoma
     Dosage: 67.8 MILLIGRAM, ONCE A DAY (50MG/M2 DAYS 8, 9, 10, 11 + 12
     Route: 042
     Dates: start: 20240713, end: 20241010
  2. DACTINOMYCIN [Suspect]
     Active Substance: DACTINOMYCIN
     Indication: Rhabdomyosarcoma
     Dosage: 2 MILLIGRAM, ONCE A DAY (5MG/M2)
     Route: 040
     Dates: start: 20240706, end: 20241001
  3. IFOSFAMIDE [Concomitant]
     Active Substance: IFOSFAMIDE
     Indication: Rhabdomyosarcoma
     Dosage: 4.1 GRAM, ONCE A DAY (3G/M2 DAYS 1 + 2, RECOMMENDED TIME OVER 3 HOURS, WITH MESNA + HYDRATION GIVEN
     Route: 042
  4. VINCRISTINE [Concomitant]
     Active Substance: VINCRISTINE
     Indication: Rhabdomyosarcoma
     Dosage: 2 MILLIGRAM (1.5MG/M2 DAYS 1, 8 + 15 (CYCLES 1 + 2), DAYS 1 AND 8 (CYCLE 3, 4, 5, 6, 7, 8, 9) MAXIMU
     Route: 042
     Dates: start: 20240706, end: 20241007
  5. METRONIDAZOLE [Concomitant]
     Active Substance: METRONIDAZOLE
     Indication: Clostridium difficile infection
     Route: 065
  6. CIPROFLOXACIN [Concomitant]
     Active Substance: CIPROFLOXACIN
     Indication: Antibiotic prophylaxis
     Dosage: UNK
     Route: 065
  7. VANCOMYCIN [Concomitant]
     Active Substance: VANCOMYCIN
     Indication: Clostridium difficile infection
     Route: 065
  8. AMINO ACIDS\DEXTROSE\ELECTROLYTES NOS\SOYBEAN OIL [Concomitant]
     Active Substance: AMINO ACIDS\DEXTROSE\ELECTROLYTES NOS\SOYBEAN OIL
     Indication: Parenteral nutrition
     Dosage: UNK
     Route: 065
  9. TRAMADOL HYDROCHLORIDE [Concomitant]
     Active Substance: TRAMADOL HYDROCHLORIDE
     Indication: Pain
     Route: 065

REACTIONS (1)
  - Venoocclusive liver disease [Not Recovered/Not Resolved]

NARRATIVE: CASE EVENT DATE: 20241011
